FAERS Safety Report 9510636 (Version 1)
Quarter: 2013Q3

REPORT INFORMATION
  Report Type: Spontaneous
  Country: IT (occurrence: IT)
  Receive Date: 20130909
  Receipt Date: 20130909
  Transmission Date: 20140515
  Serious: Yes (Hospitalization)
  Sender: FDA-Public Use
  Company Number: IT-ACTAVIS-2013-15805

PATIENT
  Age: 75 Year
  Sex: Female

DRUGS (6)
  1. IRINOTECAN [Suspect]
     Indication: COLON CANCER
     Dosage: 290 MG, 1 TRIMESTER
     Route: 040
     Dates: start: 20121210, end: 20130731
  2. FLUOROURACIL (UNKNOWN) [Suspect]
     Indication: PRODUCT USED FOR UNKNOWN INDICATION
     Dosage: 3890 MG, 1 TRIMESTER
     Route: 040
     Dates: start: 20121210, end: 20130731
  3. CALCIUM FOLINATE DBL [Concomitant]
     Indication: COLON CANCER
     Dosage: UNK
     Route: 065
     Dates: start: 20121210, end: 20130731
  4. SOLOSA [Concomitant]
     Indication: PRODUCT USED FOR UNKNOWN INDICATION
     Route: 065
  5. TORVAST [Concomitant]
     Indication: PRODUCT USED FOR UNKNOWN INDICATION
     Route: 065
  6. SELEDIE [Concomitant]
     Indication: PRODUCT USED FOR UNKNOWN INDICATION
     Route: 065

REACTIONS (6)
  - Abdominal pain [Not Recovered/Not Resolved]
  - Diarrhoea [Not Recovered/Not Resolved]
  - Dysphagia [Not Recovered/Not Resolved]
  - Nausea [Not Recovered/Not Resolved]
  - Oral pain [Not Recovered/Not Resolved]
  - Vomiting [Not Recovered/Not Resolved]
